FAERS Safety Report 7535352-7 (Version None)
Quarter: 2011Q2

REPORT INFORMATION
  Report Type: 
  Country: None (occurrence: None)
  Receive Date: 20110609
  Receipt Date: 20080418
  Transmission Date: 20111010
  Serious: Yes (Other)
  Sender: FDA-Public Use
  Company Number: PHFR2008GB01295

PATIENT
  Sex: Female

DRUGS (10)
  1. CLOZAPINE [Suspect]
     Dosage: 200 MG NOCTE
     Route: 048
  2. VALPROIC ACID [Concomitant]
     Dosage: 400 MG, BID
     Route: 065
  3. LANSOPRAZOLE [Concomitant]
     Dosage: 30 MG, UNK
     Route: 065
  4. CLOZAPINE [Suspect]
     Indication: SCHIZOPHRENIA
     Dosage: 100MG MANE,
     Route: 048
     Dates: start: 20070409
  5. NITRAZEPAM [Concomitant]
     Dosage: 5 MG, UNK
     Route: 065
  6. RAMIPRIL [Concomitant]
     Dosage: 2.5 MG, UNK
     Route: 065
  7. BECLOMETASONE DIPROPIONATE [Concomitant]
     Dosage: 2 DF, BID
  8. ASPIRIN [Concomitant]
     Dosage: 75 MG, UNK
     Route: 065
  9. ATORVASTATIN [Concomitant]
     Dosage: 10 MG, UNK
     Route: 065
  10. HYOSCINE HYDROBROMIDE [Concomitant]
     Dosage: 1 MG, Q72H
     Route: 062

REACTIONS (5)
  - WEIGHT DECREASED [None]
  - DEPRESSED MOOD [None]
  - DECREASED INTEREST [None]
  - HYPERSOMNIA [None]
  - DECREASED APPETITE [None]
